FAERS Safety Report 10467108 (Version 3)
Quarter: 2014Q4

REPORT INFORMATION
  Report Type: Spontaneous
  Country: GB (occurrence: GB)
  Receive Date: 20140922
  Receipt Date: 20141114
  Transmission Date: 20150528
  Serious: Yes (Hospitalization)
  Sender: FDA-Public Use
  Company Number: GB-WATSON-2014-20177

PATIENT
  Age: 71 Year
  Sex: Female

DRUGS (2)
  1. RAMIPRIL (UNKNOWN) [Suspect]
     Active Substance: RAMIPRIL
     Indication: HYPERTENSION
     Dosage: 1.25 MG, UNKNOWN
     Route: 048
     Dates: end: 201408
  2. RAMIPRIL (UNKNOWN) [Suspect]
     Active Substance: RAMIPRIL
     Dosage: 2.5 MG, UNKNOWN
     Route: 048

REACTIONS (1)
  - Anaphylactic reaction [Unknown]

NARRATIVE: CASE EVENT DATE: 201408
